FAERS Safety Report 4286608-5 (Version None)
Quarter: 2004Q1

REPORT INFORMATION
  Report Type: 
  Country: None (occurrence: None)
  Receive Date: 20040205
  Receipt Date: 20040205
  Transmission Date: 20041129
  Serious: Yes (Other)
  Sender: FDA-Public Use
  Company Number: None

PATIENT
  Age: 62 Year
  Sex: Female
  Weight: 85.4577 kg

DRUGS (1)
  1. DILTIAZEM [Suspect]
     Indication: ARRHYTHMIA SUPRAVENTRICULAR
     Dosage: 180 MG DAY

REACTIONS (3)
  - DISCOMFORT [None]
  - FEELING ABNORMAL [None]
  - PHARMACEUTICAL PRODUCT COMPLAINT [None]
